FAERS Safety Report 6270384-0 (Version None)
Quarter: 2009Q3

REPORT INFORMATION
  Report Type: 
  Country: None (occurrence: None)
  Receive Date: 20090716
  Receipt Date: 20090708
  Transmission Date: 20100115
  Serious: Yes (Hospitalization, Other)
  Sender: FDA-Public Use
  Company Number: HQWYE096114AUG03

PATIENT
  Sex: Female
  Weight: 77.18 kg

DRUGS (13)
  1. PREMPRO [Suspect]
     Dosage: UNSPECIFIED
     Route: 048
  2. INDOCINE [Concomitant]
  3. NAPROSYN [Concomitant]
  4. LISINOPRIL [Concomitant]
  5. SYNTHROID [Concomitant]
  6. CLARINEX [Concomitant]
  7. ALBUTEROL [Concomitant]
  8. PREMARIN [Suspect]
     Indication: OESTROGEN REPLACEMENT THERAPY
     Dosage: UNKNOWN
     Route: 048
     Dates: start: 19920601, end: 20011001
  9. PROVERA [Suspect]
  10. VERAPAMIL [Concomitant]
  11. HYDROCHLOROTHIAZIDE [Concomitant]
  12. PREMARIN [Suspect]
     Dosage: UNSPECIFIED
     Route: 048
     Dates: start: 19920601, end: 20011001
  13. CLARITIN [Concomitant]

REACTIONS (7)
  - ASTHENIA [None]
  - BREAST CANCER METASTATIC [None]
  - CARDIAC DISORDER [None]
  - CARDIOMEGALY [None]
  - DIZZINESS [None]
  - THROMBOSIS [None]
  - WEIGHT DECREASED [None]
